FAERS Safety Report 4460109-3 (Version None)
Quarter: 2004Q3

REPORT INFORMATION
  Report Type: 
  Country: None (occurrence: None)
  Receive Date: 20040928
  Receipt Date: 20031212
  Transmission Date: 20050211
  Serious: No
  Sender: FDA-Public Use
  Company Number: US-GLAXOSMITHKLINE-A0442980A

PATIENT
  Age: 76 Year
  Sex: Female

DRUGS (8)
  1. SEREVENT [Suspect]
     Dosage: 1MCG PER DAY
     Route: 055
     Dates: start: 20031211, end: 20031211
  2. ACCOLATE [Concomitant]
  3. ATIVAN [Concomitant]
  4. COMBIVENT [Concomitant]
  5. LOTENSIN [Concomitant]
  6. DARVOCET [Concomitant]
  7. PREDNISONE [Concomitant]
  8. PULMICORT [Concomitant]

REACTIONS (1)
  - DIARRHOEA [None]
